FAERS Safety Report 24031359 (Version 2)
Quarter: 2024Q3

REPORT INFORMATION
  Report Type: Spontaneous
  Country: US (occurrence: US)
  Receive Date: 20240629
  Receipt Date: 20240703
  Transmission Date: 20241017
  Serious: Yes (Death, Life-Threatening, Hospitalization, Other)
  Sender: AUROBINDO
  Company Number: US-MLMSERVICE-20240613-PI097691-00329-1

PATIENT
  Age: 74 Year
  Sex: Female

DRUGS (3)
  1. VANCOMYCIN [Suspect]
     Active Substance: VANCOMYCIN
     Indication: Product used for unknown indication
     Dosage: 1 DOSAGE FORM
     Route: 065
  2. MEROPENEM [Suspect]
     Active Substance: MEROPENEM
     Indication: Bacterial infection
     Dosage: UNK
     Route: 065
  3. EPINEPHRINE [Concomitant]
     Active Substance: EPINEPHRINE
     Indication: Product used for unknown indication
     Dosage: UNK
     Route: 065

REACTIONS (11)
  - Multiple organ dysfunction syndrome [Fatal]
  - Enterococcal infection [Fatal]
  - Disseminated intravascular coagulation [Fatal]
  - Sepsis [Fatal]
  - Hepatic ischaemia [Fatal]
  - Gastrointestinal haemorrhage [Fatal]
  - Acute kidney injury [Fatal]
  - Anaphylactic reaction [Fatal]
  - Acinetobacter infection [Fatal]
  - Cardiac arrest [Recovered/Resolved]
  - Drug ineffective [Unknown]
